FAERS Safety Report 5674627-3 (Version None)
Quarter: 2008Q1

REPORT INFORMATION
  Report Type: 
  Country: None (occurrence: None)
  Receive Date: 20080319
  Receipt Date: 20080319
  Transmission Date: 20080703
  Serious: Yes (Hospitalization, Other)
  Sender: FDA-Public Use
  Company Number: None

PATIENT
  Sex: Female

DRUGS (8)
  1. REVLIMID [Suspect]
     Indication: MULTIPLE MYELOMA
     Dosage: 25MG DAILY X 21D/28D  PO
     Route: 048
     Dates: start: 20070830, end: 20071017
  2. REVLIMID [Suspect]
     Indication: MULTIPLE MYELOMA
     Dosage: 25MG DAILY X 21D/28D  PO
     Route: 048
     Dates: start: 20071120, end: 20071207
  3. REVLIMID [Suspect]
  4. PROCRIT [Concomitant]
  5. NPH ILETIN II [Concomitant]
  6. FAMOTIDINE [Concomitant]
  7. NORTRIPTYLINE HCL [Concomitant]
  8. LOVASTATIN [Concomitant]

REACTIONS (5)
  - ASTHENIA [None]
  - CONFUSIONAL STATE [None]
  - DEHYDRATION [None]
  - HYPERGLYCAEMIA [None]
  - PANCYTOPENIA [None]
